FAERS Safety Report 5589751-3 (Version None)
Quarter: 2008Q1

REPORT INFORMATION
  Report Type: 
  Country: None (occurrence: None)
  Receive Date: 20080114
  Receipt Date: 20080102
  Transmission Date: 20080703
  Serious: Yes (Hospitalization)
  Sender: FDA-Public Use
  Company Number: FR-JNJFOC-20080102726

PATIENT
  Sex: Male

DRUGS (3)
  1. TRAMADOL HCL [Suspect]
     Indication: PAIN
     Route: 048
  2. RIVOTRIL [Suspect]
     Route: 048
  3. RIVOTRIL [Suspect]
     Indication: SLEEP DISORDER
     Route: 048

REACTIONS (3)
  - CONFUSIONAL STATE [None]
  - DISORIENTATION [None]
  - FALL [None]
